FAERS Safety Report 10661405 (Version 2)
Quarter: 2014Q4

REPORT INFORMATION
  Report Type: Spontaneous
  Country: US (occurrence: US)
  Receive Date: 20141218
  Receipt Date: 20141218
  Transmission Date: 20150529
  Serious: Yes (Death)
  Sender: FDA-Public Use
  Company Number: US-ROCHE-1475760

PATIENT
  Sex: Female

DRUGS (2)
  1. HERCEPTIN [Suspect]
     Active Substance: TRASTUZUMAB
     Indication: PRODUCT USED FOR UNKNOWN INDICATION
     Route: 065
  2. XELODA [Suspect]
     Active Substance: CAPECITABINE
     Indication: PRODUCT USED FOR UNKNOWN INDICATION
     Route: 065

REACTIONS (9)
  - Fungal infection [Unknown]
  - Alopecia [Unknown]
  - Decreased appetite [Unknown]
  - Erythema [Unknown]
  - Peripheral swelling [Unknown]
  - Rash macular [Unknown]
  - Abdominal pain upper [Unknown]
  - Death [Fatal]
  - Nausea [Not Recovered/Not Resolved]
